FAERS Safety Report 11290629 (Version 1)
Quarter: 2015Q3

REPORT INFORMATION
  Report Type: Spontaneous
  Country: TR (occurrence: None)
  Receive Date: 20150720
  Receipt Date: 20150720
  Transmission Date: 20151125
  Serious: Yes (Hospitalization)
  Sender: FDA-Public Use
  Company Number: IPC201507-000461

PATIENT
  Age: 2 Year
  Sex: Female

DRUGS (1)
  1. METOCLOPRAMIDE HYDROCHLORIDE. [Suspect]
     Active Substance: METOCLOPRAMIDE HYDROCHLORIDE
     Indication: VOMITING
     Route: 030

REACTIONS (10)
  - Altered state of consciousness [None]
  - Prothrombin time prolonged [None]
  - Activated partial thromboplastin time prolonged [None]
  - Renal failure [None]
  - Mental status changes [None]
  - Neuroleptic malignant syndrome [None]
  - Lethargy [None]
  - Tachypnoea [None]
  - Tachycardia [None]
  - Dehydration [None]
